FAERS Safety Report 15238119 (Version 1)
Quarter: 2018Q3

REPORT INFORMATION
  Report Type: Spontaneous
  Country: US (occurrence: US)
  Receive Date: 20180803
  Receipt Date: 20180803
  Transmission Date: 20181010
  Serious: Yes (Other)
  Sender: FDA-Public Use
  Company Number: US-ALSI-201800471

PATIENT
  Age: 4 Year
  Sex: Male
  Weight: 18.1 kg

DRUGS (9)
  1. NITROUS OXIDE. [Suspect]
     Active Substance: NITROUS OXIDE
     Indication: INDUCTION OF ANAESTHESIA
     Route: 055
  2. FENTANYL. [Concomitant]
     Active Substance: FENTANYL
  3. SEVOFLURANE. [Suspect]
     Active Substance: SEVOFLURANE
  4. ONDANSETRON [Concomitant]
     Active Substance: ONDANSETRON
  5. OXYGEN. [Concomitant]
     Active Substance: OXYGEN
  6. AIR, MEDICINAL [Concomitant]
  7. DEXAMETHASONE. [Concomitant]
     Active Substance: DEXAMETHASONE
  8. DIPHENHYDRAMINE. [Concomitant]
     Active Substance: DIPHENHYDRAMINE
  9. KETOROLAC [Concomitant]
     Active Substance: KETOROLAC\KETOROLAC TROMETHAMINE

REACTIONS (2)
  - Electrocardiogram ST segment depression [Recovered/Resolved]
  - Electrocardiogram T wave biphasic [Recovered/Resolved]
